FAERS Safety Report 7663926-1 (Version None)
Quarter: 2011Q3

REPORT INFORMATION
  Report Type: 
  Country: None (occurrence: None)
  Receive Date: 20110805
  Receipt Date: 20100811
  Transmission Date: 20111222
  Serious: No
  Sender: FDA-Public Use
  Company Number: US-ABBOTT-10P-163-0663338-00

PATIENT
  Sex: Male
  Weight: 68.1 kg

DRUGS (5)
  1. IGG [Concomitant]
     Indication: PRODUCT USED FOR UNKNOWN INDICATION
     Dosage: 25 MG IN 500 CC NS IV EVERY WEEK
     Route: 042
     Dates: start: 19880101
  2. KLOR-CON [Concomitant]
     Indication: PRODUCT USED FOR UNKNOWN INDICATION
  3. PANCREASE MT 10 [Concomitant]
     Indication: PRODUCT USED FOR UNKNOWN INDICATION
     Dosage: TWO WITH EACH MEAL
  4. NIASPAN [Suspect]
     Indication: STENT PLACEMENT
     Dosage: 500 MG DAILY IN AM
     Dates: start: 20090901, end: 20100501
  5. IGG [Concomitant]
     Dosage: 25 MG IN 500 CC NS IV EVERY OTHER WEEK

REACTIONS (6)
  - MUSCULAR WEAKNESS [None]
  - BACK PAIN [None]
  - COELIAC DISEASE [None]
  - FLUSHING [None]
  - COUGH [None]
  - DIARRHOEA [None]
